FAERS Safety Report 10301106 (Version 1)
Quarter: 2014Q3

REPORT INFORMATION
  Report Type: Spontaneous
  Country: US (occurrence: None)
  Receive Date: 20140708
  Receipt Date: 20140708
  Transmission Date: 20150326
  Serious: No
  Sender: FDA-Public Use
  Company Number: None

PATIENT

DRUGS (2)
  1. CYCLOPENTOLATE HYDROCHLORIDE OPH 10MG 1%/2ML BAUSH+LOMB [Suspect]
     Active Substance: CYCLOPENTOLATE HYDROCHLORIDE
     Indication: PREOPERATIVE CARE
  2. TROPICAMIDE OPHTHALMIC 10MG, 1%/2ML BAUSCH+LOMB [Suspect]
     Active Substance: TROPICAMIDE
     Indication: PREOPERATIVE CARE

REACTIONS (1)
  - Circumstance or information capable of leading to medication error [None]

NARRATIVE: CASE EVENT DATE: 20140707
